FAERS Safety Report 12326964 (Version 6)
Quarter: 2016Q3

REPORT INFORMATION
  Report Type: Report from Study
  Country: ZA (occurrence: ZA)
  Receive Date: 20160503
  Receipt Date: 20160819
  Transmission Date: 20161109
  Serious: Yes (Hospitalization, Other)
  Sender: FDA-Public Use
  Company Number: ZA-JNJFOC-20160414572

PATIENT
  Age: 35 Year
  Sex: Female
  Weight: 59 kg

DRUGS (20)
  1. SIRTURO [Suspect]
     Active Substance: BEDAQUILINE FUMARATE
     Indication: TUBERCULOSIS
     Route: 048
     Dates: start: 20160316, end: 20160413
  2. LINEZOLID. [Suspect]
     Active Substance: LINEZOLID
     Indication: TUBERCULOSIS
     Route: 048
     Dates: start: 20160316, end: 20160413
  3. NEVIRAPINE. [Concomitant]
     Active Substance: NEVIRAPINE
     Route: 065
  4. DELAMANID [Suspect]
     Active Substance: DELAMANID
     Indication: TUBERCULOSIS
     Route: 048
     Dates: start: 20160316, end: 20160413
  5. PYRAZINAMIDE. [Suspect]
     Active Substance: PYRAZINAMIDE
     Indication: TUBERCULOSIS
     Route: 048
     Dates: start: 20160418
  6. LAMIVUDINE W/NEVIRAPINE/TENOFOVIR DISOPROXIL [Concomitant]
     Indication: HIV INFECTION
     Route: 065
     Dates: start: 20160316
  7. SIRTURO [Suspect]
     Active Substance: BEDAQUILINE FUMARATE
     Indication: TUBERCULOSIS
     Route: 048
     Dates: start: 20160418
  8. LINEZOLID. [Suspect]
     Active Substance: LINEZOLID
     Indication: TUBERCULOSIS
     Route: 048
     Dates: start: 20160418
  9. ISONIAZID. [Suspect]
     Active Substance: ISONIAZID
     Indication: TUBERCULOSIS
     Route: 048
     Dates: start: 20150528, end: 20160413
  10. TERIZIDONE [Suspect]
     Active Substance: TERIZIDONE
     Indication: TUBERCULOSIS
     Route: 048
     Dates: start: 20150528, end: 20160413
  11. EPILEM [Concomitant]
     Active Substance: EPIRUBICIN HYDROCHLORIDE
     Indication: EPILEPSY
     Route: 048
     Dates: end: 201603
  12. SIRTURO [Suspect]
     Active Substance: BEDAQUILINE FUMARATE
     Indication: EPILEPSY
     Route: 048
     Dates: start: 20160316, end: 20160413
  13. LEVOFLOXACIN. [Suspect]
     Active Substance: LEVOFLOXACIN
     Indication: TUBERCULOSIS
     Route: 048
     Dates: start: 20160316, end: 20160413
  14. PYRAZINAMIDE. [Suspect]
     Active Substance: PYRAZINAMIDE
     Indication: TUBERCULOSIS
     Route: 048
     Dates: start: 20150528, end: 20160413
  15. DELAMANID [Suspect]
     Active Substance: DELAMANID
     Indication: TUBERCULOSIS
     Route: 048
     Dates: start: 20160418
  16. SIRTURO [Suspect]
     Active Substance: BEDAQUILINE FUMARATE
     Indication: EPILEPSY
     Route: 048
     Dates: start: 20160418
  17. ISONIAZID. [Suspect]
     Active Substance: ISONIAZID
     Indication: TUBERCULOSIS
     Route: 048
     Dates: start: 20160418
  18. EPILEM [Concomitant]
     Active Substance: EPIRUBICIN HYDROCHLORIDE
     Indication: EPILEPSY
     Route: 048
     Dates: start: 20160415
  19. LEVOFLOXACIN. [Suspect]
     Active Substance: LEVOFLOXACIN
     Indication: TUBERCULOSIS
     Route: 048
     Dates: start: 20160418
  20. TERIZIDONE [Suspect]
     Active Substance: TERIZIDONE
     Indication: TUBERCULOSIS
     Route: 048
     Dates: start: 20160418, end: 20160426

REACTIONS (19)
  - Chest pain [Recovered/Resolved]
  - Seizure [Recovered/Resolved]
  - Hyponatraemia [Unknown]
  - Alanine aminotransferase increased [Recovered/Resolved]
  - Platelet count decreased [Unknown]
  - Haematemesis [Recovered/Resolved]
  - Confusional state [Unknown]
  - Hypomagnesaemia [Unknown]
  - Blood creatinine increased [Recovered/Resolved]
  - Anaemia [Unknown]
  - Hypoalbuminaemia [Recovered/Resolved]
  - Hypothyroidism [Unknown]
  - Headache [Recovered/Resolved]
  - Psychotic disorder [Recovered/Resolved]
  - Photophobia [Recovered/Resolved]
  - Pain [Recovered/Resolved]
  - Hyponatraemia [Recovered/Resolved]
  - Gastroenteritis [Recovered/Resolved]
  - Hypokalaemia [Recovered/Resolved]

NARRATIVE: CASE EVENT DATE: 20160404
